FAERS Safety Report 4865160-7 (Version None)
Quarter: 2005Q4

REPORT INFORMATION
  Report Type: 
  Country: None (occurrence: None)
  Receive Date: 20051223
  Receipt Date: 20050527
  Transmission Date: 20060501
  Serious: No
  Sender: FDA-Public Use
  Company Number: 200514578US

PATIENT
  Age: 62 Year
  Sex: Female

DRUGS (1)
  1. KETEK [Suspect]
     Dosage: DOSE: UNKNOWN

REACTIONS (3)
  - INTRAOCULAR PRESSURE INCREASED [None]
  - VISUAL DISTURBANCE [None]
  - VITREOUS DETACHMENT [None]
